FAERS Safety Report 7323382-X (Version None)
Quarter: 2011Q1

REPORT INFORMATION
  Report Type: 
  Country: None (occurrence: None)
  Receive Date: 20110217
  Receipt Date: 20110214
  Transmission Date: 20110831
  Serious: Yes (Hospitalization, Other)
  Sender: FDA-Public Use
  Company Number: NPIL/ISO/H/2011/33

PATIENT
  Age: 24 Year
  Sex: Male
  Weight: 63 kg

DRUGS (7)
  1. KETAMINE HCL [Concomitant]
  2. ISOFLURANE [Suspect]
     Indication: ASTHMA
  3. ADRENALINE [Concomitant]
  4. FENTANYL [Concomitant]
  5. CISTRACURIUM [Concomitant]
  6. MIDAZOLAM [Concomitant]
  7. MAGNESIUM SULFATE [Concomitant]

REACTIONS (8)
  - HYPERCAPNIA [None]
  - CONDITION AGGRAVATED [None]
  - HAEMODYNAMIC INSTABILITY [None]
  - BRAIN OEDEMA [None]
  - ASTHMA [None]
  - RESPIRATORY ACIDOSIS [None]
  - HYPOXIA [None]
  - BRONCHOSPASM [None]
